FAERS Safety Report 9247552 (Version 1)
Quarter: 2013Q1

REPORT INFORMATION
  Report Type: Spontaneous
  Country: US (occurrence: None)
  Receive Date: 20130305
  Receipt Date: 20130305
  Transmission Date: 20140127
  Serious: Yes (Other)
  Sender: FDA-Public Use
  Company Number: 163-21880-12062270

PATIENT
  Age: 57 Year
  Sex: Female

DRUGS (8)
  1. REVLIMID [Suspect]
     Indication: PLASMA CELL MYELOMA
     Dosage: 21 IN 28 D
     Route: 048
     Dates: start: 20120511
  2. ANTIBIOTIC [Suspect]
     Indication: PRODUCT USED FOR UNKNOWN INDICATION
  3. WARFARIN [Suspect]
  4. BACTRIM DS [Suspect]
  5. CARVEDILOL [Suspect]
  6. DECADRON (DEXAMETHASONE) [Suspect]
  7. LASIX (FUROSEMIDE) [Suspect]
  8. PLAQUENIL [Suspect]

REACTIONS (7)
  - Rash pruritic [None]
  - Local swelling [None]
  - Malaise [None]
  - Nausea [None]
  - Fatigue [None]
  - Diarrhoea [None]
  - Dehydration [None]
